FAERS Safety Report 19846929 (Version 1)
Quarter: 2021Q3

REPORT INFORMATION
  Report Type: Spontaneous
  Country: US (occurrence: US)
  Receive Date: 20210917
  Receipt Date: 20210917
  Transmission Date: 20211014
  Serious: Yes (Hospitalization)
  Sender: FDA-Public Use
  Company Number: US-FRESENIUS KABI-FK202109909

PATIENT
  Age: 78 Year
  Sex: Male

DRUGS (13)
  1. MESNA (MANUFACTURER UNKNOWN) [Suspect]
     Active Substance: MESNA
     Indication: PRODUCT USED FOR UNKNOWN INDICATION
     Dosage: 300MG/M2 DAILY OVER 24 HOURS FOR 3 DAYS ON DAYS 1?3
     Route: 042
     Dates: start: 20210518
  2. PEGFILGRASTIM [Suspect]
     Active Substance: PEGFILGRASTIM
     Dosage: 6 MG (5?10 MCG/KG DAILY) ON DAY 4 UNTIL RECOVERY OF GRANULOCYTE COUNT (REGIMEN?2)
     Route: 058
  3. RITUXIMAB. [Suspect]
     Active Substance: RITUXIMAB
     Indication: PRODUCT USED FOR UNKNOWN INDICATION
     Dosage: 375 MG/M2 ON DAY 2 AND DAY 8 OF CYCLES 1 AND 3 (REGIMEN?1)
     Route: 042
  4. CYCLOPHOSPHAMIDE. [Suspect]
     Active Substance: CYCLOPHOSPHAMIDE
     Indication: PRODUCT USED FOR UNKNOWN INDICATION
     Dosage: 150MG/M2 OVER 3 HOURS TWICE A DAY ON DAYS 1?3
     Route: 042
  5. INOTUZUMAB OZOGAMICIN [Suspect]
     Active Substance: INOTUZUMAB OZOGAMICIN
     Indication: ACUTE LYMPHOCYTIC LEUKAEMIA
     Dosage: 0.3 MG/M2 OVER 1 HOUR ON DAYS 2 AND 8 OF CYCLES 1 AND 3 (APPROXIMATE) (REGIMEN?1)
     Route: 042
     Dates: end: 20210518
  6. METHOTREXATE SODIUM. [Suspect]
     Active Substance: METHOTREXATE SODIUM
     Indication: PRODUCT USED FOR UNKNOWN INDICATION
     Dosage: 50 MG/M2 OVER 2HRS ON DAY 1 (REGIMEN?1)
     Route: 042
  7. PEGFILGRASTIM [Suspect]
     Active Substance: PEGFILGRASTIM
     Indication: PRODUCT USED FOR UNKNOWN INDICATION
     Dosage: 6 MG (5?10 MCG/KG DAILY) ON DAY 4 UNTIL RECOVERY OF GRANULOCYTE COUNT (REGIMEN?1)
     Route: 058
  8. DEXAMETHASONE. [Suspect]
     Active Substance: DEXAMETHASONE
     Indication: PRODUCT USED FOR UNKNOWN INDICATION
     Dosage: 20 MG DAILY FOR 4 DAYS ON DAYS 1?4 AND DAYS 11?14 (APPROXIMATE)
     Route: 042
  9. INOTUZUMAB OZOGAMICIN [Suspect]
     Active Substance: INOTUZUMAB OZOGAMICIN
     Dosage: 0.3 MG/M2 ON DAYS 2 AND 8 OF CYCLES 2 AND 4 (APPROXIMATE) (REGIMEN?2)
     Route: 042
  10. CYTARABINE. [Suspect]
     Active Substance: CYTARABINE
     Indication: PRODUCT USED FOR UNKNOWN INDICATION
     Dosage: 0.5 G/M2 OVER 3 HOURS TWICE A DAY X 4 DOSES ON DAYS 2 AND 3
     Route: 042
  11. METHOTREXATE SODIUM. [Suspect]
     Active Substance: METHOTREXATE SODIUM
     Dosage: 200 MG/M2 CONTINUOUS INFUSION OVER 22 HOURS ON DAY 1 (REGIMEN?2)
     Route: 042
  12. VINCRISTINE SULFATE. [Suspect]
     Active Substance: VINCRISTINE SULFATE
     Indication: PRODUCT USED FOR UNKNOWN INDICATION
     Dosage: 2 MG DAY 1 AND DAY 8 (APPROXIMATE)
     Route: 042
  13. RITUXIMAB. [Suspect]
     Active Substance: RITUXIMAB
     Dosage: 375 MG/M2 ON DAY 2 AND 8 OF CYCLES 2 AND 4 (REGIMEN?2)
     Route: 042

REACTIONS (1)
  - Encephalopathy [Recovered/Resolved]

NARRATIVE: CASE EVENT DATE: 20210703
